FAERS Safety Report 25071208 (Version 1)
Quarter: 2025Q1

REPORT INFORMATION
  Report Type: Spontaneous
  Country: JP (occurrence: JP)
  Receive Date: 20250312
  Receipt Date: 20250312
  Transmission Date: 20250408
  Serious: Yes (Other)
  Sender: EISAI
  Company Number: JP-Eisai-202414342_LEN-RCC_P_1

PATIENT
  Sex: Male

DRUGS (3)
  1. LENVATINIB [Suspect]
     Active Substance: LENVATINIB
     Indication: Renal cell carcinoma
  2. PEMBROLIZUMAB [Concomitant]
     Active Substance: PEMBROLIZUMAB
     Indication: Renal cell carcinoma
  3. PEMBROLIZUMAB [Concomitant]
     Active Substance: PEMBROLIZUMAB
     Route: 041

REACTIONS (3)
  - Adrenal insufficiency [Unknown]
  - Hypertension [Unknown]
  - Hypothyroidism [Unknown]
